FAERS Safety Report 13277042 (Version 1)
Quarter: 2017Q1

REPORT INFORMATION
  Report Type: Spontaneous
  Country: US (occurrence: US)
  Receive Date: 20170228
  Receipt Date: 20170228
  Transmission Date: 20170428
  Serious: Yes (Hospitalization)
  Sender: FDA-Public Use
  Company Number: None

PATIENT

DRUGS (4)
  1. ERTAPENEM [Suspect]
     Active Substance: ERTAPENEM
  2. HYDROCORTISONE. [Suspect]
     Active Substance: HYDROCORTISONE
  3. PANTOPRAZOLE [Suspect]
     Active Substance: PANTOPRAZOLE SODIUM
  4. CEFEPIME [Suspect]
     Active Substance: CEFEPIME HYDROCHLORIDE

REACTIONS (2)
  - Liver disorder [None]
  - Condition aggravated [None]

NARRATIVE: CASE EVENT DATE: 20150511
